FAERS Safety Report 24731700 (Version 1)
Quarter: 2024Q4

REPORT INFORMATION
  Report Type: Spontaneous
  Country: FR (occurrence: FR)
  Receive Date: 20241213
  Receipt Date: 20241213
  Transmission Date: 20250114
  Serious: Yes (Other)
  Sender: MYLAN
  Company Number: FR-AMGEN-FRASP2024234295

PATIENT
  Age: 70 Year
  Sex: Female

DRUGS (3)
  1. POMALIDOMIDE [Suspect]
     Active Substance: POMALIDOMIDE
     Indication: Plasma cell myeloma
     Dosage: UNK
     Route: 065
  2. DEXAMETHASONE [Suspect]
     Active Substance: DEXAMETHASONE
     Indication: Plasma cell myeloma
     Dosage: UNK, DOSAGE1: UNIT=NOT AVAILABLE
     Route: 065
  3. KYPROLIS [Suspect]
     Active Substance: CARFILZOMIB
     Indication: Plasma cell myeloma
     Dosage: 70 MILLIGRAM/SQ. METER, QWK (WEEKLY) DOSAGE1: UNIT=VIAL - LYOPHILIZED
     Route: 065
     Dates: start: 202401

REACTIONS (2)
  - Atypical haemolytic uraemic syndrome [Unknown]
  - Off label use [Unknown]

NARRATIVE: CASE EVENT DATE: 20240101
